FAERS Safety Report 21724829 (Version 1)
Quarter: 2022Q4

REPORT INFORMATION
  Report Type: Spontaneous
  Country: US (occurrence: US)
  Receive Date: 20221214
  Receipt Date: 20221214
  Transmission Date: 20230113
  Serious: Yes (Death, Other)
  Sender: FDA-Public Use
  Company Number: US-ALVOGEN-2022-ALVOGEN-119395

PATIENT
  Age: 47 Year
  Sex: Female

DRUGS (7)
  1. FENTANYL [Suspect]
     Active Substance: FENTANYL
     Indication: Drug abuse
  2. XYLAZINE [Suspect]
     Active Substance: XYLAZINE
     Indication: Drug abuse
  3. METHAMPHETAMINE [Suspect]
     Active Substance: METHAMPHETAMINE
     Indication: Drug abuse
  4. METHADONE [Suspect]
     Active Substance: METHADONE HYDROCHLORIDE
     Indication: Drug abuse
  5. COCAINE [Suspect]
     Active Substance: COCAINE
     Indication: Drug abuse
  6. QUININE [Suspect]
     Active Substance: QUININE
     Indication: Drug abuse
  7. CITALOPRAM [Suspect]
     Active Substance: CITALOPRAM HYDROBROMIDE
     Indication: Drug abuse

REACTIONS (1)
  - Drug abuse [Fatal]
